FAERS Safety Report 4714032-7 (Version None)
Quarter: 2005Q3

REPORT INFORMATION
  Report Type: 
  Country: None (occurrence: None)
  Receive Date: 20050712
  Receipt Date: 20050628
  Transmission Date: 20060218
  Serious: Yes (Other)
  Sender: FDA-Public Use
  Company Number: DE-2005-012018

PATIENT
  Age: 57 Year
  Sex: Male
  Weight: 103 kg

DRUGS (4)
  1. CAMPATH [Suspect]
     Indication: CHRONIC LYMPHOCYTIC LEUKAEMIA
     Dosage: 3, 10, 20 MG, INTRAVENOUS
     Route: 042
     Dates: start: 20050606, end: 20050608
  2. CAMPATH [Suspect]
     Indication: CHRONIC LYMPHOCYTIC LEUKAEMIA
     Dosage: 3, 10, 20 MG, INTRAVENOUS
     Route: 042
     Dates: start: 20050613, end: 20050620
  3. VALACYCLOVIR HCL [Concomitant]
  4. COTRIM [Concomitant]

REACTIONS (3)
  - ERYTHEMA MULTIFORME [None]
  - PAIN [None]
  - SWELLING [None]
